FAERS Safety Report 7298436-7 (Version None)
Quarter: 2011Q1

REPORT INFORMATION
  Report Type: 
  Country: None (occurrence: None)
  Receive Date: 20110217
  Receipt Date: 20110215
  Transmission Date: 20110831
  Serious: Yes (Death, Hospitalization)
  Sender: FDA-Public Use
  Company Number: AT-EISAI INC-E7389-01112-CLI-AT

PATIENT
  Sex: Male
  Weight: 73 kg

DRUGS (11)
  1. HYDAL RETARD [Concomitant]
     Indication: NEURALGIA
     Route: 048
     Dates: start: 20101001, end: 20101226
  2. NEXIUM [Concomitant]
     Indication: PROPHYLAXIS AGAINST GASTROINTESTINAL ULCER
     Route: 048
     Dates: start: 20100927, end: 20101226
  3. EPOETIN [Concomitant]
     Dosage: 10000 IE
     Route: 058
     Dates: start: 20101203, end: 20101222
  4. ELOMEL [Concomitant]
     Indication: PROPHYLAXIS AGAINST DEHYDRATION
     Route: 041
     Dates: start: 20101203, end: 20101203
  5. LYRICA [Concomitant]
     Indication: NEURALGIA
     Route: 048
     Dates: start: 20101001, end: 20101226
  6. CARBOPLATIN [Concomitant]
     Route: 041
     Dates: start: 20101110, end: 20101227
  7. FRAGMIN [Concomitant]
     Indication: THROMBOSIS PROPHYLAXIS
     Route: 058
     Dates: start: 20100927, end: 20101226
  8. SAROTEN [Concomitant]
     Indication: NEURALGIA
     Route: 048
     Dates: start: 20101001, end: 20101226
  9. CONCOR [Concomitant]
     Indication: NEURALGIA
     Route: 048
     Dates: start: 20101216, end: 20101226
  10. E7389 (BOLD) [Suspect]
     Route: 041
     Dates: start: 20101110
  11. MICONAZOLE [Concomitant]
     Indication: ORAL CANDIDIASIS
     Route: 061
     Dates: start: 20101202, end: 20101226

REACTIONS (2)
  - CARDIAC FAILURE [None]
  - FEBRILE NEUTROPENIA [None]
